FAERS Safety Report 25463588 (Version 1)
Quarter: 2025Q2

REPORT INFORMATION
  Report Type: Spontaneous
  Country: US (occurrence: US)
  Receive Date: 20250620
  Receipt Date: 20250620
  Transmission Date: 20250717
  Serious: Yes (Other)
  Sender: REGENERON
  Company Number: US-REGENERON PHARMACEUTICALS, INC.-2025-064926

PATIENT
  Sex: Female

DRUGS (2)
  1. EYLEA HD [Suspect]
     Active Substance: AFLIBERCEPT
     Indication: Peripheral exudative haemorrhagic chorioretinopathy
     Dosage: 8 MG, SINGLE (FORMULATION: HD VIAL)
     Dates: start: 20250404, end: 20250404
  2. SYSTANE (HYPROMELLOSE 2910 (4000 MPA.S)) [Concomitant]
     Active Substance: HYPROMELLOSE 2910 (4000 MPA.S)
     Indication: Dry eye

REACTIONS (2)
  - Vitreous detachment [Unknown]
  - Off label use [Unknown]

NARRATIVE: CASE EVENT DATE: 20250404
